FAERS Safety Report 20211312 (Version 1)
Quarter: 2021Q4

REPORT INFORMATION
  Report Type: Spontaneous
  Country: US (occurrence: US)
  Receive Date: 20211221
  Receipt Date: 20211221
  Transmission Date: 20220303
  Serious: Yes (Other)
  Sender: FDA-Public Use
  Company Number: US-GLAXOSMITHKLINE-US2021GSK257064

PATIENT

DRUGS (4)
  1. ZANTAC [Suspect]
     Active Substance: RANITIDINE HYDROCHLORIDE
     Indication: Product used for unknown indication
     Dosage: UNKNOWN AT THIS TIME BOTH
     Route: 065
     Dates: start: 200508, end: 201304
  2. ZANTAC [Suspect]
     Active Substance: RANITIDINE HYDROCHLORIDE
     Indication: Product used for unknown indication
     Dosage: UNKNOWN AT THIS TIME BOTH
     Route: 065
     Dates: start: 200508, end: 201304
  3. ZANTAC [Suspect]
     Active Substance: RANITIDINE HYDROCHLORIDE
     Indication: Product used for unknown indication
     Dosage: UNKNOWN AT THIS TIME BOTH
     Route: 065
     Dates: start: 200508, end: 201304
  4. RANITIDINE [Suspect]
     Active Substance: RANITIDINE
     Indication: Product used for unknown indication
     Dosage: UNKNOWN AT THIS TIME BOTH
     Route: 065
     Dates: start: 200508, end: 201304

REACTIONS (5)
  - Bladder cancer [Unknown]
  - Colorectal cancer [Unknown]
  - Hepatic cancer [Unknown]
  - Gastrointestinal carcinoma [Unknown]
  - Prostate cancer [Unknown]
